FAERS Safety Report 19044675 (Version 1)
Quarter: 2021Q1

REPORT INFORMATION
  Report Type: Spontaneous
  Country: US (occurrence: US)
  Receive Date: 20210323
  Receipt Date: 20210323
  Transmission Date: 20210420
  Serious: Yes (Hospitalization)
  Sender: FDA-Public Use
  Company Number: None

PATIENT
  Age: 60 Year
  Sex: Female

DRUGS (12)
  1. BREO ELLIPTA [Concomitant]
     Active Substance: FLUTICASONE FUROATE\VILANTEROL TRIFENATATE
  2. NORTRIPTYLIN [Concomitant]
     Active Substance: NORTRIPTYLINE
  3. AIMOVIG [Concomitant]
     Active Substance: ERENUMAB-AOOE
  4. FUROSEMIDE. [Concomitant]
     Active Substance: FUROSEMIDE
  5. ENBREL [Suspect]
     Active Substance: ETANERCEPT
     Indication: RHEUMATOID ARTHRITIS
     Dosage: ?          OTHER FREQUENCY:EVERY WEEK;?
     Route: 058
     Dates: start: 20190919
  6. PREGABALIN. [Concomitant]
     Active Substance: PREGABALIN
  7. NORCO [Concomitant]
     Active Substance: ACETAMINOPHEN\HYDROCODONE BITARTRATE
  8. ENALAPRIL [Concomitant]
     Active Substance: ENALAPRIL
  9. AMLODIPINE [Concomitant]
     Active Substance: AMLODIPINE BESYLATE
  10. DULOXETINE. [Concomitant]
     Active Substance: DULOXETINE
  11. ZOLPIDEM [Concomitant]
     Active Substance: ZOLPIDEM TARTRATE
  12. LEVOTHYROXINE. [Concomitant]
     Active Substance: LEVOTHYROXINE

REACTIONS (2)
  - Urinary tract infection [None]
  - Respiratory failure [None]
